FAERS Safety Report 20159354 (Version 2)
Quarter: 2022Q1

REPORT INFORMATION
  Report Type: Report from Study
  Country: US (occurrence: US)
  Receive Date: 20211208
  Receipt Date: 20220106
  Transmission Date: 20220423
  Serious: Yes (Other)
  Sender: FDA-Public Use
  Company Number: US-AMGEN-USASP2021190916

PATIENT
  Age: 67 Year
  Sex: Male

DRUGS (1)
  1. REPATHA [Suspect]
     Active Substance: EVOLOCUMAB
     Indication: Blood cholesterol increased
     Dosage: 140 MILLIGRAM, Q2WK
     Route: 065

REACTIONS (7)
  - Femur fracture [Unknown]
  - Multiple fractures [Unknown]
  - Arthropathy [Recovering/Resolving]
  - Road traffic accident [Unknown]
  - Fall [Unknown]
  - COVID-19 [Recovering/Resolving]
  - Electrocardiogram abnormal [Unknown]

NARRATIVE: CASE EVENT DATE: 20180101
